FAERS Safety Report 5075657-5 (Version None)
Quarter: 2006Q3

REPORT INFORMATION
  Report Type: 
  Country: None (occurrence: None)
  Receive Date: 20060809
  Receipt Date: 20060127
  Transmission Date: 20061208
  Serious: No
  Sender: FDA-Public Use
  Company Number: US-AMGEN-KDL167156

PATIENT
  Sex: Female
  Weight: 68.1 kg

DRUGS (7)
  1. PROCRIT [Suspect]
     Indication: RENAL FAILURE CHRONIC
     Route: 058
     Dates: start: 20051111
  2. LASIX [Concomitant]
     Route: 048
  3. COLCHICINE [Concomitant]
     Route: 048
  4. FOLIC ACID [Concomitant]
     Route: 048
  5. NEPHRO-VITE [Concomitant]
     Route: 048
  6. ASPIRIN [Concomitant]
     Route: 048
  7. COREG [Concomitant]
     Route: 048

REACTIONS (1)
  - THERAPEUTIC RESPONSE DECREASED [None]
